FAERS Safety Report 4509875-9 (Version None)
Quarter: 2004Q4

REPORT INFORMATION
  Report Type: 
  Country: None (occurrence: None)
  Receive Date: 20041124
  Receipt Date: 20041115
  Transmission Date: 20050328
  Serious: Yes (Other)
  Sender: FDA-Public Use
  Company Number: AU-BRISTOL-MYERS SQUIBB COMPANY-12768024

PATIENT
  Age: 3 Decade
  Sex: Female

DRUGS (2)
  1. ABILIFY [Suspect]
     Dosage: DOSING TO BE CONFIRMED.
     Route: 048
  2. EFFEXOR XR [Concomitant]

REACTIONS (5)
  - ABORTION INDUCED [None]
  - HEART DISEASE CONGENITAL [None]
  - KIDNEY MALFORMATION [None]
  - LIMB MALFORMATION [None]
  - PREGNANCY [None]
